FAERS Safety Report 7448076-1 (Version None)
Quarter: 2011Q2

REPORT INFORMATION
  Report Type: 
  Country: None (occurrence: None)
  Receive Date: 20110429
  Receipt Date: 20110222
  Transmission Date: 20111010
  Serious: No
  Sender: FDA-Public Use
  Company Number: US-ASTRAZENECA-2010SE09295

PATIENT
  Age: 92 Year
  Sex: Female

DRUGS (2)
  1. NEXIUM [Suspect]
     Route: 048
  2. BLOOD PRESSURE MEDICINE [Concomitant]

REACTIONS (2)
  - JOINT SWELLING [None]
  - FOOT FRACTURE [None]
